FAERS Safety Report 6897826-1 (Version None)
Quarter: 2010Q3

REPORT INFORMATION
  Report Type: 
  Country: None (occurrence: None)
  Receive Date: 20100802
  Receipt Date: 20070807
  Transmission Date: 20110219
  Serious: Yes (Death, Other)
  Sender: FDA-Public Use
  Company Number: US-PFIZER INC-2007024945

PATIENT
  Sex: Female
  Weight: 69.9 kg

DRUGS (9)
  1. LYRICA [Suspect]
     Indication: NEUROPATHY PERIPHERAL
     Dates: start: 20070101, end: 20070301
  2. CYMBALTA [Suspect]
     Indication: NEUROPATHY PERIPHERAL
  3. WARFARIN SODIUM [Concomitant]
  4. ALLOPURINOL [Concomitant]
  5. GLUCOPHAGE [Concomitant]
  6. METOPROLOL [Concomitant]
  7. COZAAR [Concomitant]
  8. LEVOTHYROXINE SODIUM [Concomitant]
  9. OXYGEN [Concomitant]

REACTIONS (3)
  - ACARODERMATITIS [None]
  - CARDIAC FAILURE CONGESTIVE [None]
  - PROTEIN TOTAL DECREASED [None]
